FAERS Safety Report 13566781 (Version 2)
Quarter: 2017Q2

REPORT INFORMATION
  Report Type: Report from Study
  Country: US (occurrence: US)
  Receive Date: 20170522
  Receipt Date: 20170530
  Transmission Date: 20170830
  Serious: Yes (Hospitalization, Other)
  Sender: FDA-Public Use
  Company Number: US-BRISTOL-MYERS SQUIBB COMPANY-BMS-2017-039152

PATIENT
  Age: 66 Year
  Sex: Male
  Weight: 84.8 kg

DRUGS (4)
  1. DASATINIB [Suspect]
     Active Substance: DASATINIB
     Indication: PANCREATIC CARCINOMA
     Dosage: UNK, QD
     Route: 048
     Dates: start: 20170330, end: 20170425
  2. OXALIPLATIN. [Suspect]
     Active Substance: OXALIPLATIN
     Indication: PANCREATIC CARCINOMA
     Dosage: UNK UNK, Q2WK
     Route: 042
     Dates: start: 20170330, end: 20170419
  3. LEUCOVORIN CALCIUM. [Suspect]
     Active Substance: LEUCOVORIN CALCIUM
     Indication: PANCREATIC CARCINOMA
     Dosage: UNK UNK, Q2WK
     Route: 042
     Dates: start: 20170330, end: 20170419
  4. FLUOROURACIL. [Suspect]
     Active Substance: FLUOROURACIL
     Indication: PANCREATIC CARCINOMA
     Dosage: UNK, Q2WK
     Route: 042
     Dates: start: 20170330, end: 20170419

REACTIONS (4)
  - Streptococcal infection [Recovering/Resolving]
  - Systemic inflammatory response syndrome [Recovering/Resolving]
  - Febrile neutropenia [Recovering/Resolving]
  - Sepsis [Recovering/Resolving]

NARRATIVE: CASE EVENT DATE: 20170426
